FAERS Safety Report 13087134 (Version 1)
Quarter: 2017Q1

REPORT INFORMATION
  Report Type: Report from Study
  Country: US (occurrence: US)
  Receive Date: 20170105
  Receipt Date: 20170105
  Transmission Date: 20170428
  Serious: No
  Sender: FDA-Public Use
  Company Number: US-009507513-1612USA014316

PATIENT
  Age: 77 Year
  Sex: Female

DRUGS (1)
  1. DIFICID [Suspect]
     Active Substance: FIDAXOMICIN
     Dosage: 200 MG, TWICE DAILY
     Route: 048

REACTIONS (1)
  - Diarrhoea [Not Recovered/Not Resolved]

NARRATIVE: CASE EVENT DATE: 20161227
